FAERS Safety Report 14189892 (Version 1)
Quarter: 2017Q4

REPORT INFORMATION
  Report Type: Spontaneous
  Country: US (occurrence: US)
  Receive Date: 20171115
  Receipt Date: 20171115
  Transmission Date: 20180321
  Serious: No
  Sender: FDA-Public Use
  Company Number: US-PFIZER INC-2017370905

PATIENT
  Sex: Female
  Weight: 62 kg

DRUGS (13)
  1. IBUPROFEN. [Suspect]
     Active Substance: IBUPROFEN
     Indication: ARTHRALGIA
     Dosage: 6 DF
  2. IBUPROFEN. [Suspect]
     Active Substance: IBUPROFEN
     Dosage: 2 DF, 2X/DAY [EVERY 12 HOURS, 2 MORNING 2 NIGHT] [2 AT 9:PM 2 IN THE MORINNG]
     Dates: start: 2017
  3. GLIPIZIDE. [Concomitant]
     Active Substance: GLIPIZIDE
     Indication: BLOOD GLUCOSE INCREASED
     Dosage: 5 MG, 1X/DAY
     Dates: start: 2005
  4. IBUPROFEN. [Suspect]
     Active Substance: IBUPROFEN
     Indication: INFLAMMATION
     Dosage: 5 DF, DAILY [3 IN THE MORNING AND 2 AT NIGHT ]
     Dates: start: 20170715, end: 2017
  5. JANUVIA [Concomitant]
     Active Substance: SITAGLIPTIN PHOSPHATE
     Indication: BLOOD GLUCOSE INCREASED
     Dosage: 100 MG, 1X/DAY
     Dates: start: 2015
  6. LISINOPRIL. [Concomitant]
     Active Substance: LISINOPRIL
     Dosage: 20 MG, 1X/DAY
     Route: 048
     Dates: start: 2005
  7. CALCIUM [Concomitant]
     Active Substance: CALCIUM
     Indication: ROUTINE HEALTH MAINTENANCE
     Dosage: 600 MG, 1X/DAY
     Dates: start: 2017
  8. IBUPROFEN. [Suspect]
     Active Substance: IBUPROFEN
     Indication: NECK PAIN
     Dosage: 4 DF, EVERY 6 HOURS
  9. LEVOTHYROXINE SODIUM. [Concomitant]
     Active Substance: LEVOTHYROXINE SODIUM
     Indication: DIABETES MELLITUS
     Dosage: 75 MG, 1X/DAY
     Route: 048
     Dates: start: 2005
  10. METFORMIN HCL [Concomitant]
     Active Substance: METFORMIN HYDROCHLORIDE
     Indication: BLOOD GLUCOSE ABNORMAL
     Dosage: 2000 MG, 2X/DAY
     Route: 048
     Dates: start: 2005
  11. AMLODIPINE BESYLATE. [Concomitant]
     Active Substance: AMLODIPINE BESYLATE
     Dosage: 5 MG, 1X/DAY
     Route: 048
     Dates: start: 2005
  12. MAGNESIUM [Concomitant]
     Active Substance: MAGNESIUM
     Dosage: 800 MG, 1X/DAY
     Dates: start: 2015
  13. VITAMIN D [Concomitant]
     Active Substance: CHOLECALCIFEROL
     Indication: ROUTINE HEALTH MAINTENANCE
     Dosage: 5000 IU, 1X/DAY
     Route: 048
     Dates: start: 2017

REACTIONS (1)
  - Intentional product misuse [Unknown]
